FAERS Safety Report 9160246 (Version 2)
Quarter: 2013Q1

REPORT INFORMATION
  Report Type: Report from Study
  Country: GB (occurrence: GB)
  Receive Date: 20130313
  Receipt Date: 20130326
  Transmission Date: 20140127
  Serious: Yes (Hospitalization)
  Sender: FDA-Public Use
  Company Number: GB-ROCHE-1201062

PATIENT
  Age: 73 Year
  Sex: Male
  Weight: 69.6 kg

DRUGS (8)
  1. BEVACIZUMAB [Suspect]
     Indication: COLON CANCER
     Route: 042
     Dates: start: 20130227, end: 20130227
  2. BEVACIZUMAB [Suspect]
     Indication: RECTAL CANCER
  3. DALTEPARIN [Concomitant]
     Indication: THROMBOSIS
     Route: 058
     Dates: start: 20130306, end: 20130306
  4. DALTEPARIN [Concomitant]
     Route: 058
     Dates: start: 20130307, end: 20130312
  5. DEXAMETHASONE [Concomitant]
     Route: 048
     Dates: start: 20130219, end: 20130311
  6. METOCLOPRAMIDE [Concomitant]
     Indication: MALAISE
     Route: 048
     Dates: start: 20130219
  7. PARACETAMOL [Concomitant]
     Indication: PAIN
     Route: 048
     Dates: start: 20130305
  8. LOPERAMIDE [Concomitant]
     Indication: DIARRHOEA
     Route: 048
     Dates: start: 20130306, end: 20130306

REACTIONS (1)
  - Medical device complication [Recovered/Resolved with Sequelae]
